FAERS Safety Report 20332805 (Version 1)
Quarter: 2022Q1

REPORT INFORMATION
  Report Type: Other
  Country: CN (occurrence: CN)
  Receive Date: 20220113
  Receipt Date: 20220113
  Transmission Date: 20220423
  Serious: Yes (Life-Threatening, Other)
  Sender: FDA-Public Use
  Company Number: CN-GE HEALTHCARE-2022CSU000158

PATIENT

DRUGS (5)
  1. OMNIPAQUE [Suspect]
     Active Substance: IOHEXOL
     Indication: Computerised tomogram liver
     Dosage: 30 GM, SINGLE
     Route: 042
     Dates: start: 20211228, end: 20211228
  2. OMNIPAQUE [Suspect]
     Active Substance: IOHEXOL
     Indication: Computerised tomogram of gallbladder
  3. OMNIPAQUE [Suspect]
     Active Substance: IOHEXOL
     Indication: Scan spleen
  4. OMNIPAQUE [Suspect]
     Active Substance: IOHEXOL
     Indication: Computerised tomogram pancreas
  5. OMNIPAQUE [Suspect]
     Active Substance: IOHEXOL
     Indication: Pancreatic cyst

REACTIONS (8)
  - Mood altered [Recovered/Resolved]
  - Tachypnoea [Recovered/Resolved]
  - Dysphonia [Recovered/Resolved]
  - Laryngeal discomfort [Recovered/Resolved]
  - Sensation of foreign body [Recovered/Resolved]
  - Laryngeal oedema [Recovered/Resolved]
  - Cough [Recovered/Resolved]
  - Chest discomfort [Recovered/Resolved]

NARRATIVE: CASE EVENT DATE: 20211228
